FAERS Safety Report 8165039-1 (Version None)
Quarter: 2012Q1

REPORT INFORMATION
  Report Type: 
  Country: None (occurrence: None)
  Receive Date: 20120227
  Receipt Date: 20120217
  Transmission Date: 20120608
  Serious: No
  Sender: FDA-Public Use
  Company Number: US-BIOGENIDEC-2012BI006304

PATIENT
  Age: 56 Year
  Sex: Female

DRUGS (3)
  1. AVONEX [Suspect]
     Indication: MULTIPLE SCLEROSIS
     Route: 030
  2. AVONEX [Suspect]
     Route: 030
     Dates: start: 19990501
  3. AVONEX [Suspect]
     Route: 030
     Dates: start: 19980301

REACTIONS (3)
  - CYSTITIS [None]
  - EAR INFECTION [None]
  - FUNGAL INFECTION [None]
